FAERS Safety Report 13209345 (Version 2)
Quarter: 2017Q1

REPORT INFORMATION
  Report Type: Report from Study
  Country: FR (occurrence: FR)
  Receive Date: 20170209
  Receipt Date: 20170217
  Transmission Date: 20170428
  Serious: Yes (Hospitalization, Other)
  Sender: FDA-Public Use
  Company Number: FR-GILEAD-2017-0256589

PATIENT
  Age: 55 Year
  Sex: Male
  Weight: 93.4 kg

DRUGS (33)
  1. MONONINE [Concomitant]
     Active Substance: COAGULATION FACTOR IX HUMAN
     Indication: HAEMOPHILIA
     Dosage: 6000 IU, UNK
     Dates: start: 20150315, end: 20150324
  2. MONONINE [Concomitant]
     Active Substance: COAGULATION FACTOR IX HUMAN
     Dosage: 6000 IU, UNK
     Dates: start: 20150226
  3. DIFFU K [Concomitant]
     Active Substance: POTASSIUM CHLORIDE
     Dosage: 1200 MG, BID
     Dates: start: 20150323
  4. TRIATEC                            /00116401/ [Concomitant]
     Active Substance: ACETAMINOPHEN\CODEINE PHOSPHATE
     Indication: NEPHROPATHY
     Dosage: 5 MG, QD
     Dates: start: 201402
  5. TEMERIT [Concomitant]
     Active Substance: NEBIVOLOL
     Indication: HYPERTENSION
     Dosage: 5 MG, QD
  6. RENAGEL [Concomitant]
     Active Substance: SEVELAMER HYDROCHLORIDE
     Dosage: 800 MG, BID
  7. ARANESP [Concomitant]
     Active Substance: DARBEPOETIN ALFA
     Dosage: 50 MG, QD
     Dates: start: 20150315
  8. MONONINE [Concomitant]
     Active Substance: COAGULATION FACTOR IX HUMAN
     Dosage: 6000 UNK, UNK
     Dates: start: 20150207, end: 20150302
  9. CONTRAMAL [Concomitant]
     Active Substance: TRAMADOL HYDROCHLORIDE
     Indication: PAIN
     Dosage: 100 MG, BID
  10. SOFOSBUVIR [Suspect]
     Active Substance: SOFOSBUVIR
     Indication: HEPATITIS C
     Dosage: 400 MG, QD
     Route: 065
     Dates: start: 20150115, end: 20150206
  11. AMLOR [Concomitant]
     Active Substance: AMLODIPINE BESYLATE
     Indication: HYPERTENSION
     Dosage: 5 MG, QD
     Dates: start: 20150206
  12. PARACETAMOL [Concomitant]
     Active Substance: ACETAMINOPHEN
     Indication: PAIN
     Dosage: 1000 MG, TID
     Dates: start: 20150302, end: 20150323
  13. MONONINE [Concomitant]
     Active Substance: COAGULATION FACTOR IX HUMAN
     Dosage: 8000 IU, ONCE
     Dates: start: 20150225
  14. CALCIT                             /00514701/ [Concomitant]
     Dosage: 500 MG, BID
     Dates: start: 20150607
  15. CIALIS [Concomitant]
     Active Substance: TADALAFIL
     Indication: ERECTILE DYSFUNCTION
     Dosage: 5 MG, QD
  16. TOPALGIC                           /00599202/ [Concomitant]
     Active Substance: TRAMADOL
     Indication: PAIN
     Dosage: 100 MG, BID
     Dates: start: 20150315
  17. COPEGUS [Suspect]
     Active Substance: RIBAVIRIN
     Indication: HEPATITIS C
     Dosage: 400 MG, BID
     Route: 065
     Dates: start: 20150115, end: 20150206
  18. STILNOX [Concomitant]
     Active Substance: ZOLPIDEM TARTRATE
     Dosage: 10 MG, QD
     Dates: start: 20150323
  19. SODIUM BICARBONATE. [Concomitant]
     Active Substance: SODIUM BICARBONATE
     Dosage: 1000 MG, TID
     Dates: start: 20150323
  20. MONONINE [Concomitant]
     Active Substance: COAGULATION FACTOR IX HUMAN
     Dosage: UNK
     Dates: start: 20150217
  21. LYRICA [Concomitant]
     Active Substance: PREGABALIN
     Indication: PAIN
     Dosage: 75 MG, BID
  22. LYRICA [Concomitant]
     Active Substance: PREGABALIN
     Dosage: 100 MG, BID
  23. TRAMADOL. [Concomitant]
     Active Substance: TRAMADOL
     Indication: PAIN
     Dosage: 100 MG, BID
  24. MONONINE [Concomitant]
     Active Substance: COAGULATION FACTOR IX HUMAN
     Dosage: 4000 IU, ONCE
  25. MONONINE [Concomitant]
     Active Substance: COAGULATION FACTOR IX HUMAN
     Dosage: UNK
     Dates: start: 20151005
  26. EUPANTOL [Concomitant]
     Active Substance: PANTOPRAZOLE SODIUM
     Indication: GASTROOESOPHAGEAL REFLUX DISEASE
     Dosage: UNK
     Dates: start: 20150613
  27. SEROPLEX [Concomitant]
     Active Substance: ESCITALOPRAM OXALATE
     Indication: DEPRESSION
     Dosage: 15 MG, QD
  28. INEXIUM                            /01479302/ [Concomitant]
     Active Substance: ESOMEPRAZOLE MAGNESIUM
     Indication: GASTROOESOPHAGEAL REFLUX DISEASE
     Dosage: 20 MG, QD
     Dates: start: 20160206
  29. MONONINE [Concomitant]
     Active Substance: COAGULATION FACTOR IX HUMAN
     Indication: HAEMORRHAGE PROPHYLAXIS
     Dosage: 6000 IU, QD
     Dates: start: 20150613, end: 20150616
  30. MONONINE [Concomitant]
     Active Substance: COAGULATION FACTOR IX HUMAN
     Dosage: 4000 IU, BID
     Dates: start: 20150609, end: 20150612
  31. MONONINE [Concomitant]
     Active Substance: COAGULATION FACTOR IX HUMAN
     Dosage: UNK
     Dates: start: 20160315
  32. COLOPEG [Concomitant]
     Active Substance: POLYETHYLENE GLYCOL 3350\POTASSIUM CHLORIDE\SODIUM BICARBONATE\SODIUM CHLORIDE\SODIUM SULFATE
  33. TRIATEC                            /00116401/ [Concomitant]
     Active Substance: ACETAMINOPHEN\CODEINE PHOSPHATE
     Dosage: UNK
     Dates: start: 20150120

REACTIONS (16)
  - Hyperkalaemia [Not Recovered/Not Resolved]
  - Dialysis device insertion [Unknown]
  - Dialysis device insertion [Unknown]
  - Metabolic acidosis [Unknown]
  - Peritoneal abscess [Unknown]
  - Diarrhoea [Recovered/Resolved]
  - Shock haemorrhagic [Unknown]
  - Dialysis device insertion [Unknown]
  - Staphylococcal infection [Unknown]
  - Acute kidney injury [Not Recovered/Not Resolved]
  - Peritoneal haematoma [Unknown]
  - Red blood cell count decreased [Not Recovered/Not Resolved]
  - Haematoma [Unknown]
  - Abscess [Unknown]
  - Peritoneal dialysis complication [Recovering/Resolving]
  - Device related infection [Unknown]

NARRATIVE: CASE EVENT DATE: 20150120
